FAERS Safety Report 5001530-4 (Version None)
Quarter: 2006Q2

REPORT INFORMATION
  Report Type: 
  Country: None (occurrence: None)
  Receive Date: 20060501
  Receipt Date: 20060420
  Transmission Date: 20061013
  Serious: Yes (Death)
  Sender: FDA-Public Use
  Company Number: 2005040335

PATIENT
  Age: 70 Year
  Sex: Male
  Weight: 95.2554 kg

DRUGS (5)
  1. BEXTRA [Suspect]
     Indication: ARTHRITIS
     Dosage: 10 MG (10 MG, 1 IN 1 D)
     Dates: start: 20040101
  2. GLYBURIDE [Concomitant]
  3. ACARBOSE [Concomitant]
  4. CLOPIDOGREL BISULFATE [Concomitant]
  5. HYDROCHLOROTHIAZIDE [Concomitant]

REACTIONS (6)
  - MUSCULOSKELETAL STIFFNESS [None]
  - MYOCARDIAL INFARCTION [None]
  - OEDEMA [None]
  - PAIN [None]
  - PULMONARY EMBOLISM [None]
  - TREATMENT NONCOMPLIANCE [None]
